FAERS Safety Report 8956830 (Version 1)
Quarter: 2012Q4

REPORT INFORMATION
  Report Type: 
  Country: US (occurrence: US)
  Receive Date: 20121210
  Receipt Date: 20121210
  Transmission Date: 20130627
  Serious: Yes (Other)
  Sender: FDA-Public Use
  Company Number: US-PERRIGO-12US010358

PATIENT
  Age: 4 Year
  Sex: Male
  Weight: 13.61 kg

DRUGS (2)
  1. GUAIFENESIN DM [Suspect]
     Indication: COUGH
     Dosage: Approximately 2.5 ml, single
     Route: 048
     Dates: start: 20121129, end: 20121129
  2. GUAIFENESIN DM [Suspect]
     Indication: WHEEZING

REACTIONS (5)
  - Hallucination [Recovered/Resolved]
  - Abnormal behaviour [Recovered/Resolved]
  - Agitation [Recovered/Resolved]
  - Aggression [Recovered/Resolved]
  - Incorrect dose administered [None]
